FAERS Safety Report 10583490 (Version 2)
Quarter: 2016Q4

REPORT INFORMATION
  Report Type: Spontaneous
  Country: US (occurrence: US)
  Receive Date: 20141114
  Receipt Date: 20161118
  Transmission Date: 20170206
  Serious: No
  Sender: FDA-Public Use
  Company Number: US-LUPIN PHARMACEUTICALS INC.-E2B_00001579

PATIENT
  Sex: Male
  Weight: 59.02 kg

DRUGS (1)
  1. LOSARTAN POTASSIUM AND HYDROCHLOROTHIAZIDE TABLETS USP 100 MG/12.5 MG [Suspect]
     Active Substance: HYDROCHLOROTHIAZIDE\LOSARTAN POTASSIUM
     Indication: HYPERTENSION
     Dosage: 100/12.5 MG
     Route: 048
     Dates: start: 201301, end: 20131117

REACTIONS (6)
  - Eating disorder [Not Recovered/Not Resolved]
  - Wrong technique in product usage process [Unknown]
  - Weight decreased [Unknown]
  - Tinnitus [Not Recovered/Not Resolved]
  - Lethargy [Not Recovered/Not Resolved]
  - Disturbance in attention [Not Recovered/Not Resolved]

NARRATIVE: CASE EVENT DATE: 2013
